FAERS Safety Report 8820181 (Version 1)
Quarter: 2012Q4

REPORT INFORMATION
  Report Type: 
  Country: US (occurrence: US)
  Receive Date: 20121002
  Receipt Date: 20121002
  Transmission Date: 20130627
  Serious: No
  Sender: FDA-Public Use
  Company Number: US-009507513-1210USA000008

PATIENT
  Age: 64 None
  Sex: Female

DRUGS (6)
  1. ASMANEX TWISTHALER [Suspect]
     Indication: HYPERSENSITIVITY
     Dosage: 1 Puff, qd
     Dates: start: 20120917
  2. EFFEXOR [Concomitant]
  3. CRESTOR [Concomitant]
  4. METOPROLOL [Concomitant]
  5. LEVOTHYROXINE SODIUM [Concomitant]
  6. LYRICA [Concomitant]

REACTIONS (2)
  - Cough [Recovered/Resolved]
  - Drug dose omission [Unknown]
